FAERS Safety Report 25975415 (Version 1)
Quarter: 2025Q4

REPORT INFORMATION
  Report Type: Spontaneous
  Country: US (occurrence: US)
  Receive Date: 20251029
  Receipt Date: 20251029
  Transmission Date: 20260117
  Serious: Yes (Other)
  Sender: APOTEX
  Company Number: US-APOTEX-2025AP031489

PATIENT
  Age: 21 Year
  Sex: Female
  Weight: 52 kg

DRUGS (5)
  1. GLYCOPYRROLATE [Suspect]
     Active Substance: GLYCOPYRROLATE
     Indication: Bradycardia
     Dosage: 0.2 MILLIGRAM, 2 PUSHES 3 MINUTES APART
     Route: 042
  2. GLYCOPYRROLATE [Suspect]
     Active Substance: GLYCOPYRROLATE
     Indication: Bradyarrhythmia
  3. DEXMEDETOMIDINE [Suspect]
     Active Substance: DEXMEDETOMIDINE
     Indication: Light anaesthesia
     Dosage: 1 MICROGRAM/KILOGRAM
     Route: 042
  4. DEXMEDETOMIDINE [Suspect]
     Active Substance: DEXMEDETOMIDINE
     Dosage: 1 MICROGRAM/KILOGRAM PER HOUR
     Route: 042
  5. DEXMEDETOMIDINE [Suspect]
     Active Substance: DEXMEDETOMIDINE
     Dosage: 0.6 MICROGRAM/KILOGRAM PE HOUR
     Route: 042

REACTIONS (2)
  - Acute pulmonary oedema [Recovered/Resolved]
  - Hypertensive crisis [Recovered/Resolved]
